FAERS Safety Report 6154824-3 (Version None)
Quarter: 2009Q2

REPORT INFORMATION
  Report Type: 
  Country: None (occurrence: None)
  Receive Date: 20090414
  Receipt Date: 20090402
  Transmission Date: 20091009
  Serious: Yes (Death, Other)
  Sender: FDA-Public Use
  Company Number: US-PFIZER INC-2008156894

PATIENT
  Sex: Male

DRUGS (7)
  1. SUTENT [Suspect]
     Indication: RENAL CANCER METASTATIC
     Dosage: 25 MG, UNK
  2. MINOCYCLINE [Suspect]
     Indication: DRUG ERUPTION
     Dosage: 100 MG, DAILY
     Dates: start: 20080901, end: 20081122
  3. HYDROCHLOROTHIAZIDE [Concomitant]
  4. POTASSIUM [Concomitant]
  5. AMLODIPINE [Concomitant]
  6. WARFARIN [Concomitant]
  7. FINASTERIDE [Concomitant]

REACTIONS (5)
  - BACTERIAL SEPSIS [None]
  - BLOOD CREATININE INCREASED [None]
  - NEUTROPENIA [None]
  - PNEUMONIA [None]
  - WHITE BLOOD CELL COUNT DECREASED [None]
